FAERS Safety Report 18222412 (Version 1)
Quarter: 2020Q3

REPORT INFORMATION
  Report Type: Spontaneous
  Country: JP (occurrence: JP)
  Receive Date: 20200902
  Receipt Date: 20200902
  Transmission Date: 20201103
  Serious: Yes (Other)
  Sender: FDA-Public Use
  Company Number: JP-ASTRAZENECA-2020SF09608

PATIENT
  Age: 80 Year
  Sex: Female

DRUGS (13)
  1. TAGRISSO [Suspect]
     Active Substance: OSIMERTINIB
     Indication: NON-SMALL CELL LUNG CANCER
     Route: 048
  2. CARBOPLATIN. [Concomitant]
     Active Substance: CARBOPLATIN
     Indication: NON-SMALL CELL LUNG CANCER
     Dosage: DOSE AND FREQUENCY UNKNOWN
     Route: 065
  3. ERLOTINIB HYDROCHLORIDE. [Concomitant]
     Active Substance: ERLOTINIB HYDROCHLORIDE
     Indication: NON-SMALL CELL LUNG CANCER
     Dosage: DOSE AND FREQUENCY UNKNOWN
     Route: 065
  4. PEMETREXED SODIUM HYDRATE [Concomitant]
     Active Substance: PEMETREXED
     Indication: NON-SMALL CELL LUNG CANCER
     Dosage: DOSE AND FREQUENCY UNKNOWN
     Route: 065
  5. AFATINIB MALEATE [Concomitant]
     Active Substance: AFATINIB DIMALEATE
     Indication: NON-SMALL CELL LUNG CANCER
     Dosage: DOSE AND FREQUENCY UNKNOWN
     Route: 065
  6. AFATINIB MALEATE [Concomitant]
     Active Substance: AFATINIB DIMALEATE
     Indication: NON-SMALL CELL LUNG CANCER
     Dosage: DOSE AND FREQUENCY UNKNOWN
     Route: 065
  7. CARBOPLATIN. [Concomitant]
     Active Substance: CARBOPLATIN
     Indication: NON-SMALL CELL LUNG CANCER
     Dosage: DOSE AND FREQUENCY UNKNOWN
     Route: 065
  8. DOCETAXEL. [Concomitant]
     Active Substance: DOCETAXEL
     Indication: NON-SMALL CELL LUNG CANCER
     Dosage: DOSE AND FREQUENCY UNKNOWN
     Route: 065
  9. CISPLATIN. [Concomitant]
     Active Substance: CISPLATIN
     Indication: NON-SMALL CELL LUNG CANCER
     Dosage: DOSE AND FREQUENCY UNKNOWN
     Route: 065
  10. PEMETREXED SODIUM HYDRATE [Concomitant]
     Active Substance: PEMETREXED
     Indication: NON-SMALL CELL LUNG CANCER
     Dosage: DOSE AND FREQUENCY UNKNOWN
     Route: 065
  11. BEVACIZUMAB(GENETICAL RECOMBINATION) [Concomitant]
     Active Substance: BEVACIZUMAB
     Indication: NON-SMALL CELL LUNG CANCER
     Dosage: DOSE AND FREQUENCY UNKNOWN
     Route: 065
  12. PACLITAXEL(ALBUMIN?BOUND) [Concomitant]
     Indication: NON-SMALL CELL LUNG CANCER
     Dosage: DOSE AND FREQUENCY UNKNOWN
     Route: 065
  13. IRESSA [Suspect]
     Active Substance: GEFITINIB
     Indication: NON-SMALL CELL LUNG CANCER
     Route: 048

REACTIONS (5)
  - Dizziness [Unknown]
  - Toxic skin eruption [Unknown]
  - Cardiac failure [Unknown]
  - Metastases to central nervous system [Unknown]
  - Gait disturbance [Unknown]
